FAERS Safety Report 18221025 (Version 1)
Quarter: 2020Q3

REPORT INFORMATION
  Report Type: Spontaneous
  Country: US (occurrence: US)
  Receive Date: 20200831
  Receipt Date: 20200831
  Transmission Date: 20201103
  Serious: Yes (Hospitalization)
  Sender: FDA-Public Use
  Company Number: None

PATIENT
  Age: 33 Year
  Sex: Female

DRUGS (13)
  1. TIZANIDINE. [Concomitant]
     Active Substance: TIZANIDINE
  2. LEVOFLOXACIN. [Concomitant]
     Active Substance: LEVOFLOXACIN
  3. METRONIDAZOL [Concomitant]
     Active Substance: METRONIDAZOLE
  4. GABAPENTIN. [Concomitant]
     Active Substance: GABAPENTIN
  5. METOPROLOL TARTRATE. [Concomitant]
     Active Substance: METOPROLOL TARTRATE
  6. HUMIRA [Suspect]
     Active Substance: ADALIMUMAB
     Indication: RHEUMATOID ARTHRITIS
     Route: 058
     Dates: start: 20200728
  7. ALBUTEROL. [Concomitant]
     Active Substance: ALBUTEROL
  8. OXYCODONE [Concomitant]
     Active Substance: OXYCODONE
  9. PREDNISONE. [Concomitant]
     Active Substance: PREDNISONE
  10. VENLAFAXINE [Concomitant]
     Active Substance: VENLAFAXINE HYDROCHLORIDE
  11. FORTEO [Suspect]
     Active Substance: TERIPARATIDE
     Indication: RHEUMATOID ARTHRITIS
     Dosage: ?          OTHER STRENGTH:600/2.4 UG/ML;?
     Route: 058
     Dates: start: 20200620
  12. MELOXICAM. [Concomitant]
     Active Substance: MELOXICAM
  13. SPRIONOLACT [Concomitant]

REACTIONS (1)
  - Infected cyst [None]

NARRATIVE: CASE EVENT DATE: 20200828
